FAERS Safety Report 9175247 (Version 1)
Quarter: 2013Q1

REPORT INFORMATION
  Report Type: Spontaneous
  Country: DE (occurrence: DE)
  Receive Date: 20130320
  Receipt Date: 20130320
  Transmission Date: 20140127
  Serious: Yes (Other)
  Sender: FDA-Public Use
  Company Number: DE-TEVA-354526GER

PATIENT
  Age: 76 Year
  Sex: Male

DRUGS (3)
  1. SIMVASTATIN [Suspect]
     Indication: CARDIOVASCULAR EVENT PROPHYLAXIS
     Dosage: 20 MILLIGRAM DAILY;
     Route: 048
     Dates: start: 2011, end: 2012
  2. SIMVASTATIN [Suspect]
     Dosage: 10 MILLIGRAM DAILY;
     Route: 048
     Dates: start: 2012
  3. DELIX [Concomitant]

REACTIONS (3)
  - Angina pectoris [Recovered/Resolved]
  - Dyspnoea [Recovered/Resolved]
  - Dyspnoea [Recovered/Resolved]
